FAERS Safety Report 4334671-5 (Version None)
Quarter: 2004Q1

REPORT INFORMATION
  Report Type: 
  Country: None (occurrence: None)
  Receive Date: 20040329
  Receipt Date: 20031205
  Transmission Date: 20041129
  Serious: No
  Sender: FDA-Public Use
  Company Number: 03P-163-0244467-00

PATIENT
  Age: 45 Year
  Sex: Male
  Weight: 84.8226 kg

DRUGS (4)
  1. HUMIRA [Suspect]
     Indication: RHEUMATOID ARTHRITIS
     Dosage: 40 MG, 1 IN 2 WK, SUBCUTANEOUS
     Route: 058
     Dates: start: 20031001, end: 20031201
  2. PREDNISONE [Concomitant]
  3. IBUPROFEN [Concomitant]
  4. METHOTREXATE [Concomitant]

REACTIONS (3)
  - FURUNCLE [None]
  - NASAL DISORDER [None]
  - WHITE BLOOD CELL COUNT INCREASED [None]
